FAERS Safety Report 6894650-0 (Version None)
Quarter: 2010Q3

REPORT INFORMATION
  Report Type: 
  Country: None (occurrence: None)
  Receive Date: 20100802
  Receipt Date: 20090504
  Transmission Date: 20110219
  Serious: No
  Sender: FDA-Public Use
  Company Number: US-PFIZER INC-2009210781

PATIENT
  Sex: Female
  Weight: 53.061 kg

DRUGS (5)
  1. GABAPENTIN [Suspect]
     Indication: NEUROPATHY PERIPHERAL
     Dosage: 300 MG, 1X/DAY
     Route: 048
     Dates: start: 20090101
  2. GABAPENTIN [Suspect]
     Dosage: 300 MG, 2X/DAY
     Dates: start: 20090101
  3. GABAPENTIN [Suspect]
     Dosage: 300 MG, 3X/DAY
     Dates: start: 20090101
  4. AMITIZA [Concomitant]
     Dosage: UNK
  5. METHOTREXATE [Concomitant]
     Dosage: UNK

REACTIONS (2)
  - HUNGER [None]
  - SOMNOLENCE [None]
